FAERS Safety Report 8973817 (Version 1)
Quarter: 2012Q4

REPORT INFORMATION
  Report Type: 
  Country: US (occurrence: US)
  Receive Date: 20121218
  Receipt Date: 20121218
  Transmission Date: 20130627
  Serious: No
  Sender: FDA-Public Use
  Company Number: US-BRISTOL-MYERS SQUIBB COMPANY-16862831

PATIENT
  Sex: Female
  Weight: 67.12 kg

DRUGS (1)
  1. ABILIFY [Suspect]
     Indication: SCHIZOAFFECTIVE DISORDER
     Dosage: starting Abilify 30mg approximately 7 years ago
     Dates: end: 20120802

REACTIONS (4)
  - Alopecia [Unknown]
  - Menstrual disorder [Unknown]
  - Dyspnoea [Recovering/Resolving]
  - Weight decreased [Unknown]
